FAERS Safety Report 18966626 (Version 1)
Quarter: 2021Q1

REPORT INFORMATION
  Report Type: Spontaneous
  Country: FR (occurrence: FR)
  Receive Date: 20210303
  Receipt Date: 20210303
  Transmission Date: 20210420
  Serious: Yes (Other)
  Sender: FDA-Public Use
  Company Number: FR-ALSI-2020000551

PATIENT
  Age: 72 Year
  Sex: Male

DRUGS (1)
  1. OXYGEN. [Suspect]
     Active Substance: OXYGEN
     Indication: OXYGEN THERAPY
     Route: 055

REACTIONS (4)
  - Cold burn [Recovering/Resolving]
  - Burns second degree [Recovering/Resolving]
  - Accidental exposure to product [Recovering/Resolving]
  - Product leakage [Recovering/Resolving]

NARRATIVE: CASE EVENT DATE: 20201220
